FAERS Safety Report 6432066-1 (Version None)
Quarter: 2009Q4

REPORT INFORMATION
  Report Type: 
  Country: None (occurrence: None)
  Receive Date: 20091109
  Receipt Date: 20091102
  Transmission Date: 20100525
  Serious: Yes (Hospitalization, Other)
  Sender: FDA-Public Use
  Company Number: US-ROCHE-664113

PATIENT
  Sex: Female
  Weight: 44 kg

DRUGS (1)
  1. BONIVA [Suspect]
     Indication: OSTEOPOROSIS
     Dosage: STRENGTH AND DOSE: 3MG/ 3ML
     Route: 042
     Dates: start: 20060101

REACTIONS (9)
  - DEHYDRATION [None]
  - DENTAL CARIES [None]
  - DRY MOUTH [None]
  - ORAL PAIN [None]
  - PAIN IN JAW [None]
  - TOOTH ABSCESS [None]
  - TOOTH FRACTURE [None]
  - TOOTHACHE [None]
  - WEIGHT DECREASED [None]
